FAERS Safety Report 8358559-8 (Version None)
Quarter: 2012Q2

REPORT INFORMATION
  Report Type: 
  Country: None (occurrence: None)
  Receive Date: 20120514
  Receipt Date: 20120427
  Transmission Date: 20120825
  Serious: Yes (Hospitalization)
  Sender: FDA-Public Use
  Company Number: DE-GILEAD-2012-0054586

PATIENT
  Age: 78 Year
  Sex: Male

DRUGS (11)
  1. METHIMAZOLE [Suspect]
     Indication: HYPERTHYROIDISM
  2. BISOPROLOL FUMARATE [Concomitant]
     Indication: HYPERTENSION
     Dosage: 10 MG, UNK
     Route: 048
     Dates: start: 20111028
  3. IRENAT [Concomitant]
     Indication: HYPERTHYROIDISM
     Dosage: 286 MG, TID
     Route: 048
     Dates: start: 20120305
  4. DIGITOXIN TAB [Concomitant]
     Indication: ATRIAL FIBRILLATION
     Dosage: 0.07 MG, UNK
     Route: 048
     Dates: start: 20120301, end: 20120408
  5. TORSEMIDE [Concomitant]
     Indication: HYPERTENSION
     Dosage: 10 MG, UNK
     Route: 048
  6. MARCUMAR [Concomitant]
     Indication: ANTICOAGULANT THERAPY
     Dosage: UNK
  7. ENOXAPARIN SODIUM [Concomitant]
     Indication: ANTICOAGULANT THERAPY
     Dosage: UNK
     Route: 058
     Dates: start: 20120309
  8. RANOLAZINE [Suspect]
     Indication: ARRHYTHMIA PROPHYLAXIS
     Dosage: 375 MG, UNK
     Route: 048
     Dates: start: 20120308, end: 20120410
  9. RAMIPRIL [Suspect]
     Indication: HYPERTENSION
     Dosage: 2.5 MG, QD
     Route: 048
  10. HYDROCHLOROTHIAZIDE [Concomitant]
     Indication: HYPERTENSION
     Dosage: 12 MG, UNK
     Route: 048
     Dates: end: 20120313
  11. PLANUM                             /00393701/ [Concomitant]
     Indication: PRODUCT USED FOR UNKNOWN INDICATION
     Dosage: 20 MG, PRN
     Route: 048
     Dates: start: 20120311

REACTIONS (2)
  - PANCREATITIS [None]
  - HEPATITIS [None]
